FAERS Safety Report 6148080-X (Version None)
Quarter: 2009Q2

REPORT INFORMATION
  Report Type: 
  Country: None (occurrence: None)
  Receive Date: 20090408
  Receipt Date: 20090401
  Transmission Date: 20091009
  Serious: Yes (Other)
  Sender: FDA-Public Use
  Company Number: B0567973A

PATIENT
  Sex: Female

DRUGS (3)
  1. CLENIL MODULITE [Suspect]
     Indication: ASTHMA
     Route: 055
  2. BECOTIDE [Concomitant]
     Route: 065
  3. SALMETEROL [Concomitant]
     Route: 065

REACTIONS (2)
  - HYPERSENSITIVITY [None]
  - SWELLING FACE [None]
